FAERS Safety Report 19589818 (Version 2)
Quarter: 2021Q3

REPORT INFORMATION
  Report Type: Spontaneous
  Country: US (occurrence: US)
  Receive Date: 20210721
  Receipt Date: 20210729
  Transmission Date: 20211014
  Serious: No
  Sender: FDA-Public Use
  Company Number: NVSC2021US158185

PATIENT
  Sex: Male

DRUGS (2)
  1. MEKINIST [Suspect]
     Active Substance: TRAMETINIB DIMETHYL SULFOXIDE
     Indication: NEOPLASM MALIGNANT
     Dosage: 1 MG, QD
     Route: 048
     Dates: start: 202101
  2. TAFINLAR [Suspect]
     Active Substance: DABRAFENIB MESYLATE
     Indication: NEOPLASM MALIGNANT
     Dosage: 75 MG, Q12H
     Route: 048
     Dates: start: 202101

REACTIONS (1)
  - Wrong dose [Unknown]
